FAERS Safety Report 23305658 (Version 2)
Quarter: 2024Q1

REPORT INFORMATION
  Report Type: Spontaneous
  Country: EG (occurrence: EG)
  Receive Date: 20231218
  Receipt Date: 20240301
  Transmission Date: 20240410
  Serious: Yes (Other)
  Sender: FDA-Public Use
  Company Number: EG-NOVOPROD-1148285

PATIENT
  Sex: Female

DRUGS (5)
  1. NOVORAPID [Suspect]
     Active Substance: INSULIN ASPART
     Indication: Type 1 diabetes mellitus
     Dosage: 32 IU, QD(10U BEFORE BREAKFAST, 14U BEFORE LUNCH, AND ABOUT 8U BEFORE DINNER)
     Route: 058
  2. MINERALS\VITAMINS [Concomitant]
     Active Substance: MINERALS\VITAMINS
     Indication: Product used for unknown indication
     Dosage: 10 YEARS (ONGOING), ONE ORAL TABLET PER DAY.
     Route: 048
  3. NEUROVIT [CYANOCOBALAMIN;IBUPROFEN;PYRIDOXINE HYDROCHLORIDE;THIAMINE H [Concomitant]
     Indication: Product used for unknown indication
     Dosage: ROM ABOUT 20 OR 30 YEARS (ONGOING) ONE ORAL TABLET PER DAY
     Route: 048
  4. PLENDIL [Concomitant]
     Active Substance: FELODIPINE
     Indication: Hypertension
     Dosage: FROM ABOUT 10-12 YEARS (ONE TABLET PER DAY)
  5. OMEGA 3 PLUS [FISH OIL] [Concomitant]
     Indication: Product used for unknown indication
     Dosage: UNK

REACTIONS (3)
  - Hyperglycaemia [Recovered/Resolved]
  - Device failure [Unknown]
  - Device malfunction [Unknown]
